FAERS Safety Report 16965238 (Version 1)
Quarter: 2019Q4

REPORT INFORMATION
  Report Type: Spontaneous
  Country: US (occurrence: US)
  Receive Date: 20191028
  Receipt Date: 20191028
  Transmission Date: 20200122
  Serious: Yes (Other)
  Sender: FDA-Public Use
  Company Number: US-GLAXOSMITHKLINE-US2019GSK190154

PATIENT
  Age: 84 Year
  Sex: Male

DRUGS (3)
  1. ROPINIROLE. [Suspect]
     Active Substance: ROPINIROLE
     Indication: RESTLESS LEGS SYNDROME
     Dosage: 1 MG, QD
  2. ROPINIROLE. [Suspect]
     Active Substance: ROPINIROLE
     Dosage: 3 MG, QD
  3. GABAPENTIN. [Concomitant]
     Active Substance: GABAPENTIN
     Indication: NEURALGIA
     Dosage: 300 MG, TID

REACTIONS (14)
  - Tachyphrenia [Recovered/Resolved]
  - Affective disorder [Recovered/Resolved]
  - Psychotic symptom [Recovered/Resolved]
  - Judgement impaired [Recovered/Resolved]
  - Irritability [Recovered/Resolved]
  - Bipolar disorder [Recovered/Resolved]
  - Abnormal behaviour [Recovered/Resolved]
  - Insomnia [Recovered/Resolved]
  - Hostility [Recovered/Resolved]
  - Mania [Recovered/Resolved]
  - Anosognosia [Recovered/Resolved]
  - Agitation [Recovered/Resolved]
  - Speech disorder [Recovered/Resolved]
  - Delusion of grandeur [Recovered/Resolved]
